FAERS Safety Report 13167812 (Version 2)
Quarter: 2017Q1

REPORT INFORMATION
  Report Type: Spontaneous
  Country: US (occurrence: US)
  Receive Date: 20170131
  Receipt Date: 20170306
  Transmission Date: 20170428
  Serious: Yes (Other)
  Sender: FDA-Public Use
  Company Number: US-BRISTOL-MYERS SQUIBB COMPANY-BMS-2017-005925

PATIENT
  Sex: Female

DRUGS (2)
  1. YERVOY [Suspect]
     Active Substance: IPILIMUMAB
     Indication: CHOROID MELANOMA
     Dosage: UNK
     Route: 042
     Dates: start: 2015
  2. OPDIVO [Suspect]
     Active Substance: NIVOLUMAB
     Indication: CHOROID MELANOMA
     Dosage: 3 MG/KG, UNK
     Route: 042
     Dates: start: 2015

REACTIONS (7)
  - Endocrine disorder [Unknown]
  - Product use issue [Unknown]
  - Hypophysitis [Unknown]
  - Uveitis [Unknown]
  - Rash [Unknown]
  - Neoplasm [Unknown]
  - Adverse drug reaction [Unknown]
